FAERS Safety Report 7291195-3 (Version None)
Quarter: 2011Q1

REPORT INFORMATION
  Report Type: 
  Country: None (occurrence: None)
  Receive Date: 20110214
  Receipt Date: 20110203
  Transmission Date: 20110831
  Serious: Yes (Hospitalization, Disabling, Other)
  Sender: FDA-Public Use
  Company Number: US-MERCK-1008USA00397

PATIENT
  Age: 54 Year
  Sex: Female

DRUGS (5)
  1. FOSAMAX [Suspect]
     Indication: OSTEOPOROSIS
     Route: 065
     Dates: start: 19970627, end: 20000328
  2. FOSAMAX [Suspect]
     Route: 048
     Dates: start: 20011120, end: 20030101
  3. ACTONEL [Suspect]
     Indication: OSTEOPOROSIS
     Route: 065
     Dates: start: 20050128
  4. FOSAMAX [Suspect]
     Route: 048
     Dates: start: 20000329, end: 20000901
  5. PREDNISONE [Suspect]
     Route: 065

REACTIONS (43)
  - DYSPEPSIA [None]
  - TOOTH INFECTION [None]
  - RESTLESS LEGS SYNDROME [None]
  - BLOOD CHOLESTEROL INCREASED [None]
  - DIVERTICULUM [None]
  - JAW DISORDER [None]
  - PAIN [None]
  - ORAL INFECTION [None]
  - ORAL CANDIDIASIS [None]
  - CHRONIC SINUSITIS [None]
  - ANAEMIA [None]
  - ANXIETY [None]
  - DIARRHOEA [None]
  - SKIN LESION [None]
  - RESPIRATORY DISORDER [None]
  - CHRONIC OBSTRUCTIVE PULMONARY DISEASE [None]
  - GASTROINTESTINAL DISORDER [None]
  - HYPERLIPIDAEMIA [None]
  - GASTROOESOPHAGEAL REFLUX DISEASE [None]
  - PNEUMONIA CHLAMYDIAL [None]
  - KYPHOSIS [None]
  - ABSCESS [None]
  - HERPES ZOSTER [None]
  - EDENTULOUS [None]
  - CATARACT [None]
  - DIABETES MELLITUS [None]
  - COUGH [None]
  - TOOTH FRACTURE [None]
  - TOOTH DISORDER [None]
  - RASH [None]
  - DIVERTICULUM INTESTINAL [None]
  - OSTEONECROSIS OF JAW [None]
  - LARGE INTESTINE PERFORATION [None]
  - ABDOMINAL WALL ABSCESS [None]
  - DEPRESSION [None]
  - FRACTURE [None]
  - FOOT FRACTURE [None]
  - VIRAL UPPER RESPIRATORY TRACT INFECTION [None]
  - BRONCHITIS [None]
  - ASTHMA [None]
  - FISTULA DISCHARGE [None]
  - THORACIC VERTEBRAL FRACTURE [None]
  - SOFT TISSUE DISORDER [None]
